FAERS Safety Report 15612952 (Version 3)
Quarter: 2018Q4

REPORT INFORMATION
  Report Type: Report from Study
  Country: GB (occurrence: GB)
  Receive Date: 20181113
  Receipt Date: 20181218
  Transmission Date: 20190205
  Serious: No
  Sender: FDA-Public Use
  Company Number: GB-PFIZER INC-2018458295

PATIENT
  Age: 72 Year
  Sex: Female

DRUGS (19)
  1. HERCEPTIN [Suspect]
     Active Substance: TRASTUZUMAB
     Dosage: 300 MG, EVERY 3 WEEKS
     Route: 042
     Dates: start: 20160108, end: 20160405
  2. RANITIDINE. [Concomitant]
     Active Substance: RANITIDINE
     Dosage: 150 MG, DAILY
     Route: 048
     Dates: start: 20150825, end: 20150827
  3. DOMPERIDONE [Concomitant]
     Active Substance: DOMPERIDONE
     Indication: PROPHYLAXIS
     Dosage: 10 MG, DAILY
     Route: 048
     Dates: start: 20150803, end: 20150805
  4. DEXAMETHASONE. [Concomitant]
     Active Substance: DEXAMETHASONE
     Dosage: 2 MG, DAILY THREE DAYS PRIOR TO CHEMOTHERAPY
     Route: 048
     Dates: start: 20150803, end: 20150805
  5. DOCETAXEL. [Suspect]
     Active Substance: DOCETAXEL
     Dosage: 86 MG, EVERY 3 WEEKS
     Route: 042
     Dates: start: 20150828, end: 20150918
  6. HERCEPTIN [Suspect]
     Active Substance: TRASTUZUMAB
     Dosage: 275 MG, EVERY 3 WEEKS
     Route: 042
     Dates: start: 20150818, end: 20151211
  7. TRASTUZUMAB EMTANSINE [Suspect]
     Active Substance: ADO-TRASTUZUMAB EMTANSINE
     Dosage: 148 MG, EVERY 3 WEEKS
     Route: 042
     Dates: start: 20160810
  8. RANITIDINE. [Concomitant]
     Active Substance: RANITIDINE
     Dosage: 150 MG, DAILY
     Route: 048
     Dates: start: 20150805, end: 20150807
  9. TRASTUZUMAB EMTANSINE [Suspect]
     Active Substance: ADO-TRASTUZUMAB EMTANSINE
     Indication: BREAST CANCER METASTATIC
     Dosage: 184 MG, EVERY 3 WEEKS
     Route: 042
     Dates: start: 20160426, end: 20160720
  10. CETIRIZINE [Concomitant]
     Active Substance: CETIRIZINE HYDROCHLORIDE
     Dosage: 10 MG, UNK
     Route: 048
     Dates: start: 20150825, end: 20150827
  11. 3M CAVILON ANTIFUNGAL [Concomitant]
     Active Substance: MICONAZOLE NITRATE
     Indication: PROPHYLAXIS
     Dosage: 92 G, UNK
     Route: 061
     Dates: start: 20150804
  12. HERCEPTIN [Suspect]
     Active Substance: TRASTUZUMAB
     Indication: BREAST CANCER METASTATIC
     Dosage: 400 MG EVERY 3 WEEKS, LOADING DOSE
     Route: 042
     Dates: start: 20150513, end: 20150513
  13. CETIRIZINE [Concomitant]
     Active Substance: CETIRIZINE HYDROCHLORIDE
     Dosage: 10 MG, UNK
     Route: 048
     Dates: start: 20150805, end: 20150807
  14. DOCETAXEL. [Suspect]
     Active Substance: DOCETAXEL
     Indication: HER-2 POSITIVE BREAST CANCER
     Dosage: 92 MG, EVERY 3 WEEKS
     Route: 042
     Dates: start: 20150514, end: 20150715
  15. HERCEPTIN [Suspect]
     Active Substance: TRASTUZUMAB
     Dosage: 300 MG, EVERY 3 WEEKS
     Route: 042
     Dates: start: 20150603, end: 20150804
  16. PERTUZUMAB. [Suspect]
     Active Substance: PERTUZUMAB
     Indication: BREAST CANCER METASTATIC
     Dosage: 420 MG, EVERY 3 WEEKS
     Route: 042
     Dates: start: 20150603, end: 20150807
  17. AMOXYCILLIN [Concomitant]
     Active Substance: AMOXICILLIN
     Indication: INFECTION
     Dosage: 500 MG, DAILY
     Route: 048
     Dates: start: 20150804, end: 20150810
  18. DEXAMETHASONE. [Concomitant]
     Active Substance: DEXAMETHASONE
     Dosage: 5 ML DAILY, LIQUID
     Route: 047
     Dates: start: 20150714, end: 20150923
  19. CLAVULANIC ACID [Concomitant]
     Active Substance: CLAVULANIC ACID
     Indication: INFECTION
     Dosage: 125 MG, DAILY
     Route: 048
     Dates: start: 20150804, end: 20150810

REACTIONS (19)
  - Lacrimation increased [Not Recovered/Not Resolved]
  - Ejection fraction decreased [Unknown]
  - Axillary pain [Unknown]
  - Neuropathy peripheral [Not Recovered/Not Resolved]
  - Pruritus [Recovered/Resolved]
  - Constipation [Not Recovered/Not Resolved]
  - Anaphylactic reaction [Recovered/Resolved]
  - Insomnia [Not Recovered/Not Resolved]
  - Amnesia [Not Recovered/Not Resolved]
  - Fatigue [Recovered/Resolved]
  - Panic attack [Not Recovered/Not Resolved]
  - Memory impairment [Recovered/Resolved]
  - Catheter site haemorrhage [Recovered/Resolved]
  - Dry skin [Recovered/Resolved]
  - Chest discomfort [Recovered/Resolved]
  - Condition aggravated [Recovered/Resolved]
  - Neuropathy peripheral [Not Recovered/Not Resolved]
  - Nail dystrophy [Not Recovered/Not Resolved]
  - Neuropathy peripheral [Not Recovered/Not Resolved]

NARRATIVE: CASE EVENT DATE: 20150624
